FAERS Safety Report 24637468 (Version 2)
Quarter: 2024Q4

REPORT INFORMATION
  Report Type: Spontaneous
  Country: US (occurrence: US)
  Receive Date: 20241119
  Receipt Date: 20241126
  Transmission Date: 20250114
  Serious: Yes (Death, Other)
  Sender: BIOVITRUM
  Company Number: US-BIOVITRUM-2024-US-013127

PATIENT
  Age: 86 Year
  Sex: Male

DRUGS (16)
  1. VONJO [Suspect]
     Active Substance: PACRITINIB
     Indication: Myeloproliferative neoplasm
     Dosage: TWICE DAILY
     Route: 048
     Dates: start: 20240918
  2. VONJO [Suspect]
     Active Substance: PACRITINIB
     Indication: Acute myeloid leukaemia
     Dosage: TWICE DAILY
     Route: 048
  3. ALLOPURINOL [Concomitant]
     Active Substance: ALLOPURINOL
     Indication: Product used for unknown indication
  4. CALCITRIOL [Concomitant]
     Active Substance: CALCITRIOL
     Indication: Product used for unknown indication
  5. DEFERASIROX [Concomitant]
     Active Substance: DEFERASIROX
     Indication: Product used for unknown indication
  6. DRONABINOL [Concomitant]
     Active Substance: DRONABINOL
     Indication: Product used for unknown indication
  7. EXJADE [Concomitant]
     Active Substance: DEFERASIROX
     Indication: Product used for unknown indication
  8. FLOMAX [Concomitant]
     Active Substance: TAMSULOSIN HYDROCHLORIDE
     Indication: Product used for unknown indication
  9. LEVOTHYROXINE [Concomitant]
     Active Substance: LEVOTHYROXINE
     Indication: Product used for unknown indication
  10. ZOFRAN [Concomitant]
     Active Substance: ONDANSETRON HYDROCHLORIDE
     Indication: Product used for unknown indication
  11. METFORMIN [Concomitant]
     Active Substance: METFORMIN HYDROCHLORIDE
     Indication: Product used for unknown indication
  12. FOLIC ACID [Concomitant]
     Active Substance: FOLIC ACID
     Indication: Product used for unknown indication
  13. VALACYCLOVIR [Concomitant]
     Active Substance: VALACYCLOVIR HYDROCHLORIDE
     Indication: Product used for unknown indication
  14. FISH OILS [Concomitant]
     Indication: Product used for unknown indication
  15. VIT B-12 [Concomitant]
     Indication: Product used for unknown indication
  16. CALCIUM+VIT D3 [Concomitant]
     Indication: Product used for unknown indication

REACTIONS (3)
  - Full blood count decreased [Unknown]
  - Off label use [Recovered/Resolved]
  - Death [Fatal]

NARRATIVE: CASE EVENT DATE: 20241101
